FAERS Safety Report 11532932 (Version 2)
Quarter: 2015Q4

REPORT INFORMATION
  Report Type: Spontaneous
  Country: CH (occurrence: IT)
  Receive Date: 20150921
  Receipt Date: 20151001
  Transmission Date: 20160304
  Serious: Yes (Life-Threatening)
  Sender: FDA-Public Use
  Company Number: CH-LPDUSPRD-20150707

PATIENT
  Age: 67 Year
  Sex: Female

DRUGS (1)
  1. FERINJECT [Suspect]
     Active Substance: FERRIC CARBOXYMALTOSE
     Dosage: 500 MG/DOSE/2 DOSES TOTAL
     Route: 042
     Dates: start: 20150813, end: 20150824

REACTIONS (7)
  - Psychomotor hyperactivity [Unknown]
  - Hypertensive crisis [Unknown]
  - Wheezing [Unknown]
  - Cyanosis [Unknown]
  - Loss of consciousness [Unknown]
  - Respiratory arrest [Unknown]
  - Sinus tachycardia [Unknown]

NARRATIVE: CASE EVENT DATE: 20150824
